FAERS Safety Report 23683994 (Version 2)
Quarter: 2024Q2

REPORT INFORMATION
  Report Type: Spontaneous
  Country: AU (occurrence: AU)
  Receive Date: 20240328
  Receipt Date: 20240617
  Transmission Date: 20240716
  Serious: Yes (Hospitalization)
  Sender: FDA-Public Use
  Company Number: AU-WOODWARD-2024-AU-000188

PATIENT
  Sex: Male

DRUGS (9)
  1. RABEPRAZOLE SODIUM [Suspect]
     Active Substance: RABEPRAZOLE SODIUM
     Indication: Product used for unknown indication
     Dosage: 20.0 MILLIGRAM(S) (20 MILLIGRAM(S), 1 IN 1 DAY) IN THE MORNING
     Route: 048
  2. ALLOPURINOL [Suspect]
     Active Substance: ALLOPURINOL
     Dosage: 200 MG IN THE MORNING WITH FOOD AND 300 MG AT NIGHT.
     Route: 048
  3. ATORVASTATIN [Suspect]
     Active Substance: ATORVASTATIN
     Dosage: 20.0 MILLIGRAM(S) (20 MILLIGRAM(S), 1 IN 1 DAY), IN THE MORNING
     Route: 048
  4. ROSUVASTATIN [Suspect]
     Active Substance: ROSUVASTATIN
     Dosage: DOSE AND FREQUENCY UNKNOWN
     Route: 048
  5. OLANZAPINE [Suspect]
     Active Substance: OLANZAPINE
     Dosage: 5 MG IN THE MORNING AT 8 AM, 5 MG IN THE EVENING AT 5 PM AND 25MG IN THE NIGHT AT 8 PM.
     Route: 048
  6. VALPROATE SODIUM [Suspect]
     Active Substance: VALPROATE SODIUM
     Dosage: 2400 MILLIGRAM(S) (1200 MILLIGRAM(S), 2 IN 1 DAY)
     Route: 048
  7. ASPIRIN [Suspect]
     Active Substance: ASPIRIN
     Dosage: 100.0 MILLIGRAM(S) (100 MILLIGRAM(S), 1 IN 1 DAY) IN THE MORNING WITH FOOD
     Route: 048
  8. LEXAPRO [Suspect]
     Active Substance: ESCITALOPRAM OXALATE
     Dosage: 20.0 MILLIGRAM(S) (20 MILLIGRAM(S), 1 IN 1 DAY) IN THE MORNING
     Route: 048
  9. THYROXINE [Suspect]
     Active Substance: LEVOTHYROXINE
     Dosage: 0.1 MG 5 TIMES/WEEK FROM MON TO FRI AND 0.075 MG 2 TIMES/WEEK ON SAT AND SUN.
     Route: 048

REACTIONS (9)
  - Anxiety [Unknown]
  - Tachycardia [Unknown]
  - Leukocyte adhesion deficiency [Unknown]
  - Stenosis [Unknown]
  - Thrombocytopenia [Unknown]
  - Troponin increased [Not Recovered/Not Resolved]
  - Chest pain [Recovered/Resolved]
  - Dyspnoea [Unknown]
  - Palpitations [Unknown]

NARRATIVE: CASE EVENT DATE: 20211101
